FAERS Safety Report 10270795 (Version 1)
Quarter: 2014Q2

REPORT INFORMATION
  Report Type: Spontaneous
  Country: US (occurrence: None)
  Receive Date: 20140626
  Receipt Date: 20140626
  Transmission Date: 20141212
  Serious: Yes (Life-Threatening, Hospitalization, Other)
  Sender: FDA-Public Use
  Company Number: None

PATIENT
  Age: 28 Year
  Sex: Female

DRUGS (2)
  1. NAROPIN [Suspect]
     Indication: EPIDURAL ANAESTHESIA
     Dates: start: 20140408, end: 20140408
  2. OFIRMEV [Suspect]
     Indication: PROCEDURAL PAIN
     Dates: start: 20140408, end: 20140408

REACTIONS (5)
  - Convulsion [None]
  - Blood pressure decreased [None]
  - Incorrect route of drug administration [None]
  - Incorrect dose administered [None]
  - Product packaging confusion [None]
